FAERS Safety Report 8214544-8 (Version None)
Quarter: 2012Q1

REPORT INFORMATION
  Report Type: 
  Country: None (occurrence: None)
  Receive Date: 20120316
  Receipt Date: 20120308
  Transmission Date: 20120608
  Serious: Yes (Other)
  Sender: FDA-Public Use
  Company Number: CA-BAXTER-2012BH006141

PATIENT
  Age: 19 Year
  Sex: Female

DRUGS (11)
  1. GAMMAGARD LIQUID [Suspect]
     Indication: ANGIOEDEMA
     Route: 042
  2. GAMMAGARD LIQUID [Suspect]
     Route: 042
     Dates: start: 20100328
  3. MONTELUKAST [Concomitant]
     Indication: ASTHMA
     Route: 042
  4. RANITIDINE [Concomitant]
     Indication: PROPHYLAXIS
     Route: 065
  5. METHYLPREDNISOLONE [Concomitant]
     Indication: ANGIOEDEMA
     Route: 042
  6. GAMMAGARD LIQUID [Suspect]
     Route: 042
     Dates: start: 20100328
  7. C1 ESTERASE INHIBITOR [Concomitant]
     Indication: ANGIOEDEMA
     Route: 065
  8. EPINEPHRINE [Concomitant]
     Indication: ANGIOEDEMA
     Route: 030
  9. GAMMAGARD LIQUID [Suspect]
     Indication: OFF LABEL USE
     Route: 042
  10. HYDROXYCHLOROQUINE SULFATE [Suspect]
     Indication: ANGIOEDEMA
     Route: 065
  11. CETIRIZINE [Concomitant]
     Indication: PROPHYLAXIS
     Route: 065

REACTIONS (1)
  - POSTERIOR REVERSIBLE ENCEPHALOPATHY SYNDROME [None]
